FAERS Safety Report 10860665 (Version 1)
Quarter: 2015Q1

REPORT INFORMATION
  Report Type: Spontaneous
  Country: LU (occurrence: LU)
  Receive Date: 20150224
  Receipt Date: 20150224
  Transmission Date: 20150721
  Serious: Yes (Hospitalization, Other)
  Sender: FDA-Public Use
  Company Number: LU-ABBVIE-14K-098-1288185-00

PATIENT
  Age: 57 Year
  Sex: Female
  Weight: 68 kg

DRUGS (13)
  1. COVERSYL [Concomitant]
     Active Substance: PERINDOPRIL
     Indication: PRODUCT USED FOR UNKNOWN INDICATION
  2. CONCOR [Concomitant]
     Active Substance: BISOPROLOL FUMARATE
     Dates: start: 20150130
  3. ASPIRIN. [Concomitant]
     Active Substance: ASPIRIN
     Indication: PRODUCT USED FOR UNKNOWN INDICATION
     Dates: end: 20150130
  4. CONCOR [Concomitant]
     Active Substance: BISOPROLOL FUMARATE
     Indication: PRODUCT USED FOR UNKNOWN INDICATION
     Dates: end: 20150130
  5. NEXIAM [Concomitant]
     Active Substance: ESOMEPRAZOLE
     Dates: start: 20150130
  6. BEFACT FORTE [Concomitant]
     Indication: PRODUCT USED FOR UNKNOWN INDICATION
     Dates: start: 20150129
  7. AMBROXOL [Concomitant]
     Active Substance: AMBROXOL
     Indication: PRODUCT USED FOR UNKNOWN INDICATION
     Dates: start: 20150129
  8. HUMIRA [Suspect]
     Active Substance: ADALIMUMAB
     Indication: CROHN^S DISEASE
     Route: 058
     Dates: start: 201304, end: 201501
  9. VALCYTE [Concomitant]
     Active Substance: VALGANCICLOVIR HYDROCHLORIDE
     Indication: PRODUCT USED FOR UNKNOWN INDICATION
  10. IMURAN [Concomitant]
     Active Substance: AZATHIOPRINE
     Indication: PRODUCT USED FOR UNKNOWN INDICATION
     Dates: end: 2015
  11. NEXIAM [Concomitant]
     Active Substance: ESOMEPRAZOLE
     Indication: PRODUCT USED FOR UNKNOWN INDICATION
     Dates: end: 20150130
  12. IMURAN [Concomitant]
     Active Substance: AZATHIOPRINE
     Dates: start: 2015
  13. STATIN [Concomitant]
     Active Substance: UNSPECIFIED INGREDIENT
     Indication: PRODUCT USED FOR UNKNOWN INDICATION

REACTIONS (32)
  - Cytomegalovirus test positive [Unknown]
  - Aspartate aminotransferase increased [Unknown]
  - Mean cell volume increased [Unknown]
  - Nervous system disorder [Unknown]
  - Hypoaesthesia [Recovering/Resolving]
  - Muscular weakness [Unknown]
  - Paraesthesia [Recovering/Resolving]
  - Platelet count decreased [Unknown]
  - Blood alkaline phosphatase increased [Unknown]
  - Tuberculosis [Unknown]
  - Carcinoembryonic antigen increased [Unknown]
  - Lymphocyte count decreased [Unknown]
  - White blood cell count decreased [Unknown]
  - Toxoplasma serology positive [Unknown]
  - Borrelia infection [Unknown]
  - Serum ferritin increased [Unknown]
  - Gamma-glutamyltransferase increased [Unknown]
  - Neuroborreliosis [Unknown]
  - Alanine aminotransferase increased [Unknown]
  - Eosinophil count decreased [Unknown]
  - Blood glucose increased [Unknown]
  - Abasia [Unknown]
  - Guillain-Barre syndrome [Unknown]
  - Glycosylated haemoglobin increased [Unknown]
  - Monocyte count decreased [Unknown]
  - Latent tuberculosis [Unknown]
  - Lyme disease [Recovering/Resolving]
  - Gastritis viral [Unknown]
  - Blood potassium decreased [Unknown]
  - Herpes simplex serology positive [Unknown]
  - Beta 2 microglobulin increased [Unknown]
  - Varicella virus test positive [Unknown]

NARRATIVE: CASE EVENT DATE: 20140715
